FAERS Safety Report 6903278-5 (Version None)
Quarter: 2010Q3

REPORT INFORMATION
  Report Type: 
  Country: None (occurrence: None)
  Receive Date: 20100803
  Receipt Date: 20080626
  Transmission Date: 20110219
  Serious: No
  Sender: FDA-Public Use
  Company Number: US-PFIZER INC-2008053380

PATIENT
  Sex: Female

DRUGS (5)
  1. LYRICA [Suspect]
     Indication: TRIGEMINAL NEURALGIA
     Dates: start: 20080501
  2. LYRICA [Suspect]
     Indication: HERPES ZOSTER
  3. POTASSIUM [Concomitant]
  4. ZOCOR [Concomitant]
  5. TOPROL-XL [Concomitant]

REACTIONS (1)
  - PAIN IN EXTREMITY [None]
